FAERS Safety Report 7060066-X (Version None)
Quarter: 2010Q4

REPORT INFORMATION
  Report Type: 
  Country: None (occurrence: None)
  Receive Date: 20101025
  Receipt Date: 20101018
  Transmission Date: 20110411
  Serious: Yes (Hospitalization)
  Sender: FDA-Public Use
  Company Number: US-JNJFOC-20100102123

PATIENT
  Age: 33 Year
  Sex: Female

DRUGS (2)
  1. ULTRAM [Suspect]
     Indication: PRODUCT USED FOR UNKNOWN INDICATION
     Route: 065
  2. DIPHENHYDRAMINE HCL [Suspect]
     Indication: PRODUCT USED FOR UNKNOWN INDICATION
     Dosage: ^TAKEN IN LARGE DOSES ALL THE TIME^
     Route: 065

REACTIONS (8)
  - CONVULSION [None]
  - HYPOTENSION [None]
  - OVERDOSE [None]
  - RHABDOMYOLYSIS [None]
  - SOMNOLENCE [None]
  - TACHYCARDIA [None]
  - URINE OUTPUT DECREASED [None]
  - VOMITING [None]
